FAERS Safety Report 10230601 (Version 2)
Quarter: 2014Q3

REPORT INFORMATION
  Report Type: Spontaneous
  Country: US (occurrence: US)
  Receive Date: 20140611
  Receipt Date: 20140905
  Transmission Date: 20150326
  Serious: Yes (Other)
  Sender: FDA-Public Use
  Company Number: US-INCYTE CORPORATION-2014IN001253

PATIENT
  Age: 67 Year
  Sex: Male

DRUGS (10)
  1. SEPTRA [Concomitant]
     Active Substance: SULFAMETHOXAZOLE\TRIMETHOPRIM
  2. AMITRIPTYLINE [Concomitant]
     Active Substance: AMITRIPTYLINE
  3. JAKAFI [Suspect]
     Active Substance: RUXOLITINIB
     Dosage: 5 MG, QD
     Route: 048
     Dates: start: 2014, end: 20140823
  4. VESICARE [Concomitant]
     Active Substance: SOLIFENACIN SUCCINATE
  5. JAKAFI [Suspect]
     Active Substance: RUXOLITINIB
     Indication: MYELOFIBROSIS
     Dosage: 5 MG, BID
     Route: 048
     Dates: start: 20140423
  6. JAKAFI [Suspect]
     Active Substance: RUXOLITINIB
     Dosage: 5 MG, QD
     Route: 048
     Dates: start: 20140825
  7. ATENOLOL. [Concomitant]
     Active Substance: ATENOLOL
  8. AMIODARONE [Concomitant]
     Active Substance: AMIODARONE
  9. MULTIVITAMINS [Concomitant]
     Active Substance: VITAMINS
  10. CIALIS [Concomitant]
     Active Substance: TADALAFIL

REACTIONS (5)
  - Constipation [Unknown]
  - Dyspnoea [Unknown]
  - Intestinal obstruction [Recovered/Resolved]
  - Fatigue [Unknown]
  - Platelet count abnormal [Unknown]

NARRATIVE: CASE EVENT DATE: 201404
